FAERS Safety Report 11551464 (Version 1)
Quarter: 2015Q3

REPORT INFORMATION
  Report Type: Spontaneous
  Country: US (occurrence: US)
  Receive Date: 20150903
  Receipt Date: 20150903
  Transmission Date: 20151125
  Serious: No
  Sender: FDA-Public Use
  Company Number: US-ELI_LILLY_AND_COMPANY-US201208004608

PATIENT
  Age: 47 Year
  Sex: Male

DRUGS (1)
  1. HUMALOG [Suspect]
     Active Substance: INSULIN LISPRO
     Indication: DIABETES MELLITUS

REACTIONS (7)
  - Blood triglycerides increased [Unknown]
  - High density lipoprotein decreased [Unknown]
  - Blood glucose increased [Unknown]
  - Blood pressure increased [Unknown]
  - Hypoglycaemia [Recovered/Resolved]
  - Low density lipoprotein decreased [Unknown]
  - Glycosylated haemoglobin increased [Unknown]

NARRATIVE: CASE EVENT DATE: 2010
